FAERS Safety Report 7364401-4 (Version None)
Quarter: 2011Q1

REPORT INFORMATION
  Report Type: 
  Country: None (occurrence: None)
  Receive Date: 20110321
  Receipt Date: 20110309
  Transmission Date: 20110831
  Serious: Yes (Hospitalization, Other)
  Sender: FDA-Public Use
  Company Number: KR-JNJFOC-20110306186

PATIENT
  Age: 33 Year
  Sex: Female

DRUGS (5)
  1. PROPRANOLOL [Suspect]
     Indication: PRODUCT USED FOR UNKNOWN INDICATION
     Route: 065
  2. OLANZAPINE [Concomitant]
     Indication: PSYCHOTIC DISORDER
     Route: 065
  3. LORAZEPAM [Suspect]
     Indication: PRODUCT USED FOR UNKNOWN INDICATION
     Route: 065
  4. RISPERIDONE [Suspect]
     Indication: SCHIZOPHRENIA
     Route: 065
  5. RISPERIDONE [Suspect]
     Route: 065

REACTIONS (5)
  - ANXIETY [None]
  - AGGRESSION [None]
  - CONSTIPATION [None]
  - PNEUMONIA ASPIRATION [None]
  - INAPPROPRIATE ANTIDIURETIC HORMONE SECRETION [None]
